FAERS Safety Report 15257928 (Version 1)
Quarter: 2018Q3

REPORT INFORMATION
  Report Type: Report from Study
  Country: None (occurrence: US)
  Receive Date: 20180808
  Receipt Date: 20180808
  Transmission Date: 20181010
  Serious: Yes (Hospitalization, Other)
  Sender: FDA-Public Use
  Company Number: US-ABBVIE-18K-163-2391207-00

PATIENT
  Age: 59 Year
  Sex: Female
  Weight: 43.13 kg

DRUGS (5)
  1. CLOPIDOGREL [Concomitant]
     Active Substance: CLOPIDOGREL BISULFATE
     Indication: THROMBOSIS
  2. SIMVASTATIN. [Concomitant]
     Active Substance: SIMVASTATIN
     Indication: BLOOD CHOLESTEROL INCREASED
  3. TRAZODONE [Concomitant]
     Active Substance: TRAZODONE HYDROCHLORIDE
     Indication: ARTHRALGIA
  4. CALCIUM + VITAMIN D3 [Concomitant]
     Active Substance: CALCIUM CARBONATE\CHOLECALCIFEROL
     Indication: VITAMIN SUPPLEMENTATION
  5. HUMIRA [Suspect]
     Active Substance: ADALIMUMAB
     Indication: RHEUMATOID ARTHRITIS
     Route: 058
     Dates: start: 2015

REACTIONS (5)
  - Gangrene [Recovered/Resolved]
  - Joint swelling [Not Recovered/Not Resolved]
  - Pain in extremity [Recovering/Resolving]
  - Arthralgia [Unknown]
  - Peripheral artery occlusion [Recovering/Resolving]

NARRATIVE: CASE EVENT DATE: 201703
